FAERS Safety Report 18666297 (Version 1)
Quarter: 2020Q4

REPORT INFORMATION
  Report Type: Spontaneous
  Country: US (occurrence: US)
  Receive Date: 20201226
  Receipt Date: 20201226
  Transmission Date: 20210114
  Serious: No
  Sender: FDA-Public Use
  Company Number: US-TEVA-2020-US-1861141

PATIENT
  Age: 54 Year
  Sex: Female
  Weight: 70.31 kg

DRUGS (1)
  1. COPAXONE [Suspect]
     Active Substance: GLATIRAMER ACETATE
     Indication: MULTIPLE SCLEROSIS
     Dosage: DAILY, FORM STRENGTH UNKNOWN
     Route: 065
     Dates: start: 2002, end: 201607

REACTIONS (12)
  - Visual impairment [Unknown]
  - Eye swelling [Unknown]
  - Hypoaesthesia [Recovering/Resolving]
  - Feeling hot [Unknown]
  - Flushing [Unknown]
  - Swelling face [Unknown]
  - Head discomfort [Unknown]
  - Skin hypertrophy [Recovering/Resolving]
  - Throat tightness [Unknown]
  - Drug hypersensitivity [Unknown]
  - Dysgeusia [Unknown]
  - Wrong technique in product usage process [Unknown]

NARRATIVE: CASE EVENT DATE: 2013
